FAERS Safety Report 5206455-7 (Version None)
Quarter: 2007Q1

REPORT INFORMATION
  Report Type: 
  Country: None (occurrence: None)
  Receive Date: 20070109
  Receipt Date: 20061229
  Transmission Date: 20070707
  Serious: Yes (Death, Hospitalization)
  Sender: FDA-Public Use
  Company Number: 2006BI018379

PATIENT
  Age: 71 Year
  Sex: Female
  Weight: 99.7913 kg

DRUGS (14)
  1. AVONEX [Suspect]
     Indication: MULTIPLE SCLEROSIS
     Dosage: 30 UG;QW;IM
     Route: 030
     Dates: start: 20021210, end: 20040101
  2. AVONEX [Suspect]
     Indication: MULTIPLE SCLEROSIS
     Dosage: 30 UG;QW;IM
     Route: 030
     Dates: start: 20040101, end: 20061119
  3. BACLOFEN [Concomitant]
  4. NEURONTIN [Concomitant]
  5. OXYBUTYNIN [Concomitant]
  6. FUROSEMIDE [Concomitant]
  7. ESTRADIOL [Concomitant]
  8. LEVOXYL [Concomitant]
  9. PROTONIX [Concomitant]
  10. PREDNISONE TAB [Concomitant]
  11. GAMMAGARD [Concomitant]
  12. MIRALAX [Concomitant]
  13. ASCORBIC ACID [Concomitant]
  14. VITAMIN B-12 [Concomitant]

REACTIONS (3)
  - FUNGAL INFECTION [None]
  - MYOCARDIAL INFARCTION [None]
  - PNEUMONIA [None]
